FAERS Safety Report 4283296-9 (Version None)
Quarter: 2004Q1

REPORT INFORMATION
  Report Type: 
  Country: None (occurrence: None)
  Receive Date: 20040129
  Receipt Date: 20040116
  Transmission Date: 20041129
  Serious: Yes (Hospitalization, Other)
  Sender: FDA-Public Use
  Company Number: 2004003783

PATIENT
  Age: 72 Year
  Sex: Male

DRUGS (2)
  1. NEURONTIN [Suspect]
     Indication: ILL-DEFINED DISORDER
     Dosage: 900 MG (DAILY), ORAL
     Route: 048
     Dates: start: 20031229, end: 20031231
  2. TEICOPLANIN (TEICOPLANIN) [Suspect]
     Indication: ILL-DEFINED DISORDER
     Dosage: 8 MG/KG (ONCE), INTRAVENOUS
     Route: 042
     Dates: start: 20031230, end: 20031230

REACTIONS (4)
  - CONVULSION [None]
  - DYSTONIA [None]
  - EPILEPSY [None]
  - MYOCLONIC EPILEPSY [None]
